FAERS Safety Report 11654351 (Version 1)
Quarter: 2015Q4

REPORT INFORMATION
  Report Type: Spontaneous
  Country: US (occurrence: None)
  Receive Date: 20151022
  Receipt Date: 20151022
  Transmission Date: 20160304
  Serious: Yes (Hospitalization)
  Sender: FDA-Public Use
  Company Number: None

PATIENT
  Age: 74 Year
  Sex: Female
  Weight: 69.5 kg

DRUGS (20)
  1. RIFAXIMIN (XIFAXAN) [Concomitant]
  2. GEMCITABINE 1000 MG/M2 [Suspect]
     Active Substance: GEMCITABINE HYDROCHLORIDE
     Indication: PANCREATIC CARCINOMA
     Route: 042
     Dates: start: 20150615, end: 20150615
  3. OMEPRAZOLE (PRILOSEC) [Concomitant]
  4. ZOFRAN [Concomitant]
     Active Substance: ONDANSETRON HYDROCHLORIDE
  5. ACETAMINOPHEN-HYDROCODONE (NORCO ) [Concomitant]
  6. SYMBICORT [Concomitant]
     Active Substance: BUDESONIDE\FORMOTEROL FUMARATE DIHYDRATE
  7. ESTRADIOL TOPICAL (VAGIFEM) [Concomitant]
  8. FLUTICASONE-SALMETEROL (ADVAIR DISKUS) [Concomitant]
  9. DEXAMETHASONE. [Concomitant]
     Active Substance: DEXAMETHASONE
  10. BIOTIN [Concomitant]
     Active Substance: BIOTIN
  11. CETIRIZINE (ZYRTEC) [Concomitant]
  12. NAB-PACLITAXEL 125 MG/M2 [Suspect]
     Active Substance: PACLITAXEL
     Indication: PANCREATIC CARCINOMA
     Route: 042
     Dates: start: 20150615, end: 20150615
  13. CALCIUM ACETATE (PHOSPHATE BINDER) [Concomitant]
  14. CLONAZEPAM (KLONOPIN) [Concomitant]
  15. MULTIVITAMIN WITH MINERALS (CENTRUM SILVER MEN^S) [Concomitant]
  16. MULTIVITAMIN WITH MINERALS (VITAL-D) [Concomitant]
  17. DOCUSATE (COLACE) [Concomitant]
  18. PANCRELIPASE (CREON) [Concomitant]
  19. LACTULOSE. [Concomitant]
     Active Substance: LACTULOSE
  20. TIOTROPIUM (SPIRIVA) [Concomitant]

REACTIONS (5)
  - Nausea [None]
  - Vomiting [None]
  - Constipation [None]
  - Fatigue [None]
  - Abdominal pain [None]

NARRATIVE: CASE EVENT DATE: 20150617
